FAERS Safety Report 19752927 (Version 2)
Quarter: 2021Q3

REPORT INFORMATION
  Report Type: Report from Study
  Country: FR (occurrence: FR)
  Receive Date: 20210827
  Receipt Date: 20210910
  Transmission Date: 20211014
  Serious: Yes (Hospitalization)
  Sender: FDA-Public Use
  Company Number: FR-ROCHE-2894848

PATIENT
  Age: 71 Year
  Sex: Female

DRUGS (6)
  1. ATEZOLIZUMAB. [Suspect]
     Active Substance: ATEZOLIZUMAB
     Route: 041
     Dates: start: 202107, end: 202107
  2. ATEZOLIZUMAB. [Suspect]
     Active Substance: ATEZOLIZUMAB
     Indication: NON-SMALL CELL LUNG CANCER
     Route: 041
     Dates: start: 20210629, end: 20210629
  3. CARBOPLATINE [Suspect]
     Active Substance: CARBOPLATIN
     Indication: NON-SMALL CELL LUNG CANCER
     Route: 042
     Dates: start: 20210629, end: 20210629
  4. CARBOPLATINE [Suspect]
     Active Substance: CARBOPLATIN
     Route: 042
     Dates: start: 20210726, end: 20210726
  5. PEMETREXED. [Suspect]
     Active Substance: PEMETREXED
     Route: 042
     Dates: start: 20210726, end: 20210726
  6. PEMETREXED. [Suspect]
     Active Substance: PEMETREXED
     Indication: NON-SMALL CELL LUNG CANCER
     Route: 042
     Dates: start: 20210629, end: 20210629

REACTIONS (2)
  - Pyrexia [Not Recovered/Not Resolved]
  - Rectal haemorrhage [Not Recovered/Not Resolved]

NARRATIVE: CASE EVENT DATE: 20210731
